FAERS Safety Report 17211499 (Version 1)
Quarter: 2019Q4

REPORT INFORMATION
  Report Type: Spontaneous
  Country: US (occurrence: US)
  Receive Date: 20191229
  Receipt Date: 20191229
  Transmission Date: 20200122
  Serious: No
  Sender: FDA-Public Use
  Company Number: US-TARO-2019TAR00703

PATIENT
  Age: 49 Year
  Sex: Female
  Weight: 83.9 kg

DRUGS (3)
  1. DESONIDE. [Concomitant]
     Active Substance: DESONIDE
     Dosage: UNK, 2X/DAY
     Route: 061
  2. METRONIDAZOLE GEL USP, 1% [Suspect]
     Active Substance: METRONIDAZOLE
     Indication: ROSACEA
     Dosage: ^A LITTLE MORE THAN A PEA SIZE^, 1X/DAY AS NEEDED
     Route: 061
     Dates: start: 20190307
  3. KETOCONAZOLE. [Concomitant]
     Active Substance: KETOCONAZOLE
     Dosage: UNK, 1X/DAY AT NIGHT

REACTIONS (3)
  - Product quality issue [Unknown]
  - Product substitution issue [Unknown]
  - Drug ineffective [Unknown]

NARRATIVE: CASE EVENT DATE: 20190307
